FAERS Safety Report 9474912 (Version 1)
Quarter: 2013Q3

REPORT INFORMATION
  Report Type: Spontaneous
  Country: US (occurrence: None)
  Receive Date: 20130822
  Receipt Date: 20130822
  Transmission Date: 20140515
  Serious: Yes (Death)
  Sender: FDA-Public Use
  Company Number: None

PATIENT
  Age: 78 Year
  Sex: Male

DRUGS (1)
  1. ZOLINZA [Suspect]
     Indication: LEUKAEMIA
     Route: 048
     Dates: start: 20130712

REACTIONS (1)
  - Death [None]
